FAERS Safety Report 17305161 (Version 1)
Quarter: 2020Q1

REPORT INFORMATION
  Report Type: Spontaneous
  Country: US (occurrence: US)
  Receive Date: 20200123
  Receipt Date: 20200123
  Transmission Date: 20200409
  Serious: No
  Sender: FDA-Public Use
  Company Number: US-PFIZER INC-2020030990

PATIENT
  Age: 65 Year
  Sex: Female
  Weight: 87.53 kg

DRUGS (1)
  1. IBRANCE [Suspect]
     Active Substance: PALBOCICLIB
     Dosage: 125 MG, CYCLIC (DAILY 3 WEEKS ON THEN 1 WEEK OFF)
     Route: 048
     Dates: start: 201707

REACTIONS (4)
  - Nasopharyngitis [Unknown]
  - Influenza [Unknown]
  - Nasal congestion [Unknown]
  - Hypersomnia [Unknown]
